FAERS Safety Report 9717805 (Version 1)
Quarter: 2013Q4

REPORT INFORMATION
  Report Type: Spontaneous
  Country: US (occurrence: US)
  Receive Date: 20131125
  Receipt Date: 20131125
  Transmission Date: 20140711
  Serious: No
  Sender: FDA-Public Use
  Company Number: US-VIVUS-2012V1000229

PATIENT
  Age: 41 Year
  Sex: Female
  Weight: 137.11 kg

DRUGS (3)
  1. QSYMIA 3.75MG/23MG [Suspect]
     Indication: WEIGHT DECREASED
     Route: 048
     Dates: start: 20121013, end: 20121016
  2. METFORMIN [Concomitant]
     Indication: POLYCYSTIC OVARIES
  3. SPIRONOLACTONE [Concomitant]
     Indication: POLYCYSTIC OVARIES

REACTIONS (4)
  - Insomnia [Recovered/Resolved]
  - Choking sensation [Recovered/Resolved]
  - Pollakiuria [Recovered/Resolved]
  - Anxiety [Recovered/Resolved]
